FAERS Safety Report 23751451 (Version 1)
Quarter: 2024Q2

REPORT INFORMATION
  Report Type: Spontaneous
  Country: SY (occurrence: SY)
  Receive Date: 20240417
  Receipt Date: 20240417
  Transmission Date: 20240716
  Serious: Yes (Hospitalization, Other)
  Sender: FDA-Public Use
  Company Number: SY-BBU-2024000008

PATIENT
  Age: 14 Year
  Sex: Male
  Weight: 120 kg

DRUGS (1)
  1. TOCILIZUMAB [Suspect]
     Active Substance: TOCILIZUMAB
     Indication: Still^s disease
     Route: 042
     Dates: start: 202202, end: 202302

REACTIONS (2)
  - Hepatitis fulminant [Recovered/Resolved]
  - Hepatitis A [Recovered/Resolved]
